FAERS Safety Report 12611565 (Version 2)
Quarter: 2016Q3

REPORT INFORMATION
  Report Type: Spontaneous
  Country: US (occurrence: US)
  Receive Date: 20160801
  Receipt Date: 20160916
  Transmission Date: 20161109
  Serious: No
  Sender: FDA-Public Use
  Company Number: US-PFIZER INC-2016334955

PATIENT
  Age: 59 Year
  Sex: Female

DRUGS (26)
  1. SILDENAFIL CITRATE. [Suspect]
     Active Substance: SILDENAFIL CITRATE
     Indication: RAYNAUD^S PHENOMENON
  2. AZELAIC ACID. [Concomitant]
     Active Substance: AZELAIC ACID
     Indication: RASH
     Dosage: UNK , 2X/DAY (15%)
     Route: 061
  3. SILDENAFIL CITRATE. [Suspect]
     Active Substance: SILDENAFIL CITRATE
     Indication: GRAFT VERSUS HOST DISEASE
     Dosage: 50 MG, 2X/DAY
     Route: 048
     Dates: start: 20160517
  4. VITAMIN C [Concomitant]
     Active Substance: ASCORBIC ACID
     Dosage: UNK
     Route: 048
  5. PREDNISONE. [Concomitant]
     Active Substance: PREDNISONE
     Indication: URTICARIA
     Dosage: 5 MG, DAILY (1 MG TAB/5 TABS BY MOUTH DAILY)
     Route: 048
  6. PREDNISONE. [Concomitant]
     Active Substance: PREDNISONE
     Dosage: 10 MG, DAILY
     Route: 048
  7. RESTASIS [Concomitant]
     Active Substance: CYCLOSPORINE
     Dosage: UNK, 2X/DAY (0.05%)(EVERY 12 HOURS)
     Route: 047
  8. PENTOXIFYLLINE. [Concomitant]
     Active Substance: PENTOXIFYLLINE
     Dosage: 400 MG, 2X/DAY
  9. PREDNISONE. [Concomitant]
     Active Substance: PREDNISONE
     Dosage: 3 MG, UNK
  10. TACROLIMUS. [Concomitant]
     Active Substance: TACROLIMUS
     Dosage: UNK, 2X/DAY (0.1%)
     Route: 061
  11. OMEGA-3 FISH OIL +VITAMIN D3 [Concomitant]
     Dosage: UNK (1000-1000 MG-UNIT)
     Route: 048
  12. MUPIROCIN. [Concomitant]
     Active Substance: MUPIROCIN
     Dosage: UNK UNK, 2X/DAY (2%)
     Route: 061
  13. OMEPRAZOLE. [Concomitant]
     Active Substance: OMEPRAZOLE
     Dosage: 20 MG, DAILY (30 MIN BEFORE BREAKFAST)
     Route: 048
  14. METRONIDAZOLE. [Concomitant]
     Active Substance: METRONIDAZOLE
     Indication: ROSACEA
     Dosage: UNK UNK, DAILY (1%)
     Route: 061
  15. HYDROCODONE/ACETAMINOPHEN [Concomitant]
     Active Substance: ACETAMINOPHEN\HYDROCODONE
     Dosage: UNK (1-2 TABS BY MOUTH EVERY 6 HRS) (HYDROCODONE-5MG, ACETAMINOPHEN-300MG)
     Route: 048
  16. SULFAMETHOXAZOLE AND TRIMETHOPRIM [Concomitant]
     Active Substance: SULFAMETHOXAZOLE\TRIMETHOPRIM
     Dosage: 20 ML, ALTERNATE DAY (ON MONDAYS, WEDNESDAYS, AND FRIDAYS)
     Route: 048
  17. VALTREX [Concomitant]
     Active Substance: VALACYCLOVIR HYDROCHLORIDE
     Dosage: 500 MG, 2X/DAY
     Route: 048
  18. JAKAFI [Concomitant]
     Active Substance: RUXOLITINIB
     Indication: GRAFT VERSUS HOST DISEASE
     Dosage: 5 MG, UNK
     Dates: start: 20160517
  19. COLCHICINE. [Concomitant]
     Active Substance: COLCHICINE
     Indication: GOUT
     Dosage: 0.6 MG, UNK (2 TABS ONCE THEN ONE TAB 30 MIN LATER)
  20. RECON [Concomitant]
     Dosage: 5 ML, 4X/DAY (WITH MEALS)
     Route: 048
  21. HYDREA [Concomitant]
     Active Substance: HYDROXYUREA
     Dosage: 1000 MG, DAILY (ALTERNATING 3 TABS AND 2 TABS QOD)
     Route: 048
  22. BIOTIN [Concomitant]
     Active Substance: BIOTIN
     Dosage: UNK
     Route: 048
  23. VITAMIN D [Concomitant]
     Active Substance: CHOLECALCIFEROL
     Dosage: 1000 IU, DAILY
     Route: 048
  24. JUBLIA [Concomitant]
     Active Substance: EFINACONAZOLE
     Indication: NAIL DISORDER
     Dosage: UNK (10%)
     Route: 061
  25. PREDNISONE. [Concomitant]
     Active Substance: PREDNISONE
     Dosage: 10 MG, DAILY
     Route: 048
  26. TRIAMCINOLONE ACETONIDE. [Concomitant]
     Active Substance: TRIAMCINOLONE ACETONIDE
     Dosage: UNK, 2X/DAY (0.1%)
     Route: 061

REACTIONS (1)
  - Product use issue [Unknown]

NARRATIVE: CASE EVENT DATE: 20160517
